FAERS Safety Report 9069779 (Version 1)
Quarter: 2013Q1

REPORT INFORMATION
  Report Type: Report from Study
  Country: US (occurrence: US)
  Receive Date: 20130131
  Receipt Date: 20130131
  Transmission Date: 20140127
  Serious: No
  Sender: FDA-Public Use
  Company Number: US-ABBOTT-12P-163-0957534-00

PATIENT
  Age: 38 None
  Sex: Female
  Weight: 86.26 kg

DRUGS (4)
  1. HUMIRA [Suspect]
     Indication: CROHN^S DISEASE
     Dates: start: 2010, end: 20120909
  2. HUMIRA [Suspect]
     Dates: start: 20120909
  3. PENTASA [Concomitant]
     Indication: CROHN^S DISEASE
     Dosage: 4 TO 6 TIMES DAILY
  4. ENTOCORT [Concomitant]
     Indication: CROHN^S DISEASE

REACTIONS (4)
  - Crohn^s disease [Not Recovered/Not Resolved]
  - Drug ineffective [Not Recovered/Not Resolved]
  - Drug ineffective [Unknown]
  - Abdominal pain upper [Not Recovered/Not Resolved]
